FAERS Safety Report 8543326-2 (Version None)
Quarter: 2012Q3

REPORT INFORMATION
  Report Type: 
  Country: None (occurrence: None)
  Receive Date: 20120727
  Receipt Date: 20120713
  Transmission Date: 20120928
  Serious: Yes (Hospitalization)
  Sender: FDA-Public Use
  Company Number: DE-BAUSCH-BL-2012-000072

PATIENT
  Sex: Female

DRUGS (2)
  1. OFLOXACIN [Suspect]
     Indication: PRODUCT USED FOR UNKNOWN INDICATION
     Route: 047
     Dates: start: 20120622
  2. OPHTALMIN-N SINE AUGENTROPFEN [Suspect]
     Indication: POSTOPERATIVE CARE
     Dosage: 3 APPLICATIONS DAILY
     Route: 047
     Dates: start: 20120622, end: 20120703

REACTIONS (5)
  - CONVULSION [None]
  - UNRESPONSIVE TO STIMULI [None]
  - CYANOSIS [None]
  - APATHY [None]
  - LOSS OF CONSCIOUSNESS [None]
